FAERS Safety Report 5235364-2 (Version None)
Quarter: 2007Q1

REPORT INFORMATION
  Report Type: 
  Country: None (occurrence: None)
  Receive Date: 20070212
  Receipt Date: 20070208
  Transmission Date: 20070707
  Serious: No
  Sender: FDA-Public Use
  Company Number: US-ELI_LILLY_AND_COMPANY-US200702001775

PATIENT
  Age: 30 Year
  Sex: Male

DRUGS (2)
  1. ZYPREXA [Suspect]
     Indication: SCHIZOPHRENIA
  2. GEODON [Concomitant]
     Dosage: 160 MG, UNK

REACTIONS (1)
  - LEUKOPENIA [None]
